FAERS Safety Report 7400092-1 (Version None)
Quarter: 2011Q2

REPORT INFORMATION
  Report Type: 
  Country: None (occurrence: None)
  Receive Date: 20110407
  Receipt Date: 20100630
  Transmission Date: 20111010
  Serious: Yes (Other)
  Sender: FDA-Public Use
  Company Number: PHHY2010DE90804

PATIENT

DRUGS (1)
  1. EXTAVIA [Suspect]
     Dosage: UNK

REACTIONS (3)
  - ATAXIA [None]
  - INFLUENZA LIKE ILLNESS [None]
  - FATIGUE [None]
